FAERS Safety Report 8018172-9 (Version None)
Quarter: 2012Q1

REPORT INFORMATION
  Report Type: 
  Country: None (occurrence: None)
  Receive Date: 20120103
  Receipt Date: 20111222
  Transmission Date: 20120608
  Serious: Yes (Hospitalization)
  Sender: FDA-Public Use
  Company Number: BE-JNJFOC-20111210321

PATIENT
  Sex: Female
  Weight: 43 kg

DRUGS (3)
  1. AZATHIOPRINE [Suspect]
     Indication: CROHN'S DISEASE
  2. MESALAMINE [Concomitant]
     Indication: CROHN'S DISEASE
     Route: 054
  3. REMICADE [Suspect]
     Indication: CROHN'S DISEASE
     Route: 042
     Dates: start: 20110412

REACTIONS (1)
  - STAPHYLOCOCCAL ABSCESS [None]
